FAERS Safety Report 5941279-4 (Version None)
Quarter: 2008Q4

REPORT INFORMATION
  Report Type: 
  Country: None (occurrence: None)
  Receive Date: 20081103
  Receipt Date: 20081103
  Transmission Date: 20090506
  Serious: No
  Sender: FDA-Public Use
  Company Number: None

PATIENT
  Age: 8 Year
  Sex: Male
  Weight: 40.8237 kg

DRUGS (1)
  1. SINGULAIR [Suspect]

REACTIONS (1)
  - ANXIETY [None]
